FAERS Safety Report 18961724 (Version 3)
Quarter: 2021Q2

REPORT INFORMATION
  Report Type: Spontaneous
  Country: US (occurrence: US)
  Receive Date: 20210303
  Receipt Date: 20210531
  Transmission Date: 20210717
  Serious: Yes (Death, Other)
  Sender: FDA-Public Use
  Company Number: US-NOVOPROD-790559

PATIENT
  Age: 79 Year
  Sex: Male

DRUGS (3)
  1. LEVEMIR [Suspect]
     Active Substance: INSULIN DETEMIR
     Indication: DIABETES MELLITUS
     Dosage: 15 IU, QD (EVERY MORNING)
     Route: 058
  2. LEVEMIR [Suspect]
     Active Substance: INSULIN DETEMIR
     Dosage: UNK
     Route: 058
  3. LEVEMIR [Suspect]
     Active Substance: INSULIN DETEMIR
     Dosage: 8 IU, QD  (EVERY MORNING)
     Route: 058

REACTIONS (5)
  - Blood glucose fluctuation [Unknown]
  - Diabetic complication [Fatal]
  - Renal disorder [Fatal]
  - Seizure [Unknown]
  - Cardiac disorder [Fatal]

NARRATIVE: CASE EVENT DATE: 202010
